FAERS Safety Report 7352707-4 (Version None)
Quarter: 2011Q1

REPORT INFORMATION
  Report Type: 
  Country: None (occurrence: None)
  Receive Date: 20110302
  Receipt Date: 20110201
  Transmission Date: 20110831
  Serious: Yes (Other)
  Sender: FDA-Public Use
  Company Number: 317885

PATIENT
  Age: 38 Year
  Sex: Female
  Weight: 54.9 kg

DRUGS (2)
  1. NOVOLIN 70/30 [Suspect]
     Indication: TYPE 1 DIABETES MELLITUS
     Dosage: 12 U, TID, SUBCUTANEOUS, 12 U, BID
     Route: 058
     Dates: start: 19920101
  2. NOVOLIN 70/30 [Suspect]
     Indication: TYPE 1 DIABETES MELLITUS
     Dosage: 12 U, TID, SUBCUTANEOUS, 12 U, BID
     Route: 058
     Dates: start: 20101101, end: 20101101

REACTIONS (2)
  - HYPOGLYCAEMIC UNCONSCIOUSNESS [None]
  - BLOOD GLUCOSE DECREASED [None]
